FAERS Safety Report 9549299 (Version 1)
Quarter: 2013Q3

REPORT INFORMATION
  Report Type: Spontaneous
  Country: US (occurrence: None)
  Receive Date: 20130923
  Receipt Date: 20130923
  Transmission Date: 20140515
  Serious: Yes (Life-Threatening, Hospitalization)
  Sender: FDA-Public Use
  Company Number: None

PATIENT
  Age: 40 Year
  Sex: Female
  Weight: 106 kg

DRUGS (2)
  1. DIATRIZOATE SODIUM [Suspect]
     Indication: COMPUTERISED TOMOGRAM
     Dates: start: 20130909, end: 20130913
  2. VANCOMYCIN [Suspect]
     Dates: start: 20130910, end: 20130913

REACTIONS (3)
  - Dialysis [None]
  - Blood creatinine increased [None]
  - Drug level increased [None]
